FAERS Safety Report 10387065 (Version 2)
Quarter: 2014Q3

REPORT INFORMATION
  Report Type: Spontaneous
  Country: IL (occurrence: IL)
  Receive Date: 20140815
  Receipt Date: 20140819
  Transmission Date: 20150326
  Serious: Yes (Death, Hospitalization, Other)
  Sender: FDA-Public Use
  Company Number: IL-SHIRE-IL201404870

PATIENT
  Age: 70 Year
  Sex: Male

DRUGS (1)
  1. VPRIV [Suspect]
     Active Substance: VELAGLUCERASE ALFA
     Indication: PRODUCT USED FOR UNKNOWN INDICATION
     Dosage: 3200 IU, OTHER (PER MONTH)
     Route: 041

REACTIONS (4)
  - Enterococcal bacteraemia [Unknown]
  - Inappropriate schedule of drug administration [Not Recovered/Not Resolved]
  - Pneumonia [Fatal]
  - Plasma cell myeloma [Unknown]
